FAERS Safety Report 23166777 (Version 1)
Quarter: 2023Q4

REPORT INFORMATION
  Report Type: Spontaneous
  Country: US (occurrence: None)
  Receive Date: 20231109
  Receipt Date: 20231109
  Transmission Date: 20240109
  Serious: Yes (Other)
  Sender: FDA-Public Use
  Company Number: 2023A252128

PATIENT

DRUGS (2)
  1. FASLODEX [Suspect]
     Active Substance: FULVESTRANT
     Indication: Breast cancer stage IV
     Route: 030
  2. IBRANCE [Suspect]
     Active Substance: PALBOCICLIB
     Indication: Breast cancer stage IV
     Dosage: TAKE 1 TAB DAILY FOR 21 DAYS WITH 7 DAYS OFF ON A 28 DAY CYCLE
     Route: 048

REACTIONS (4)
  - Hormone receptor positive breast cancer [Unknown]
  - Metastases to bone [Unknown]
  - Human epidermal growth factor receptor negative [Unknown]
  - Headache [Recovered/Resolved]
